FAERS Safety Report 8312790-6 (Version None)
Quarter: 2012Q2

REPORT INFORMATION
  Report Type: 
  Country: None (occurrence: None)
  Receive Date: 20120426
  Receipt Date: 20120418
  Transmission Date: 20120825
  Serious: No
  Sender: FDA-Public Use
  Company Number: US-PFIZER INC-2012097591

PATIENT
  Sex: Female
  Weight: 55.782 kg

DRUGS (6)
  1. DEPAKOTE [Concomitant]
     Indication: CONVULSION
     Dosage: THREE TABLETS OF 125MG IN THE MORNING
     Route: 048
  2. LACOSAMIDE [Concomitant]
     Indication: CONVULSION
     Dosage: 50 MG, 2X/DAY
  3. ZYVOX [Suspect]
     Indication: URINARY TRACT INFECTION
     Dosage: 600 MG, DAILY
     Dates: start: 20120401
  4. SYNTHROID [Concomitant]
     Indication: HYPOTHYROIDISM
     Dosage: 25 UG, DAILY
  5. DEPAKOTE [Concomitant]
     Dosage: THREE TABLETS OF 125MG IN THE NIGHT
  6. DEPAKOTE [Concomitant]
     Dosage: TWO TABLETS OF 125MG IN THE EVENING

REACTIONS (1)
  - DIARRHOEA [None]
